FAERS Safety Report 18329644 (Version 4)
Quarter: 2021Q1

REPORT INFORMATION
  Report Type: Report from Study
  Country: NL (occurrence: NL)
  Receive Date: 20200930
  Receipt Date: 20210309
  Transmission Date: 20210419
  Serious: Yes (Hospitalization, Other)
  Sender: FDA-Public Use
  Company Number: NVSC2020NL128295

PATIENT
  Age: 71 Year
  Sex: Male
  Weight: 72 kg

DRUGS (8)
  1. TRAMETINIB [Suspect]
     Active Substance: TRAMETINIB
     Indication: ANAPLASTIC THYROID CANCER
     Dosage: 2 MG, QD (1DD)
     Route: 048
     Dates: start: 20200410
  2. LORAZEPAM. [Concomitant]
     Active Substance: LORAZEPAM
     Indication: ANXIETY
     Dosage: 1 MG (AN)
     Route: 048
     Dates: start: 2000
  3. LITHIUM. [Concomitant]
     Active Substance: LITHIUM
     Indication: BIPOLAR DISORDER
     Dosage: 1200 MG
     Route: 065
     Dates: start: 2000, end: 20200904
  4. DABRAFENIB [Suspect]
     Active Substance: DABRAFENIB
     Dosage: 75 MG, BID (2DD)
     Route: 048
  5. AMITRIPTYLINE [Concomitant]
     Active Substance: AMITRIPTYLINE
     Indication: DEPRESSION
     Dosage: 50 MG
     Route: 065
     Dates: start: 20200829, end: 20200904
  6. LITHIUMCARBONAAT [Concomitant]
     Active Substance: LITHIUM CARBONATE
     Indication: BIPOLAR DISORDER
     Dosage: 1000 MG (1DD)
     Route: 048
     Dates: start: 2000
  7. DABRAFENIB [Suspect]
     Active Substance: DABRAFENIB
     Indication: ANAPLASTIC THYROID CANCER
     Dosage: 150 MG, BID (2DD)
     Route: 048
     Dates: start: 20200410
  8. BISOPROLOL [Concomitant]
     Active Substance: BISOPROLOL
     Indication: PRODUCT USED FOR UNKNOWN INDICATION
     Dosage: 1.25 MG
     Route: 065
     Dates: start: 20200827, end: 20200904

REACTIONS (6)
  - Cardiac failure [Unknown]
  - Atrial flutter [Unknown]
  - Supraventricular tachycardia [Recovered/Resolved]
  - Hypotension [Recovered/Resolved with Sequelae]
  - Pyrexia [Recovered/Resolved]
  - Pyrexia [Unknown]

NARRATIVE: CASE EVENT DATE: 20200421
